FAERS Safety Report 24384165 (Version 1)
Quarter: 2024Q4

REPORT INFORMATION
  Report Type: Report from Study
  Country: EG (occurrence: EG)
  Receive Date: 20241001
  Receipt Date: 20241001
  Transmission Date: 20250114
  Serious: No
  Sender: SANDOZ
  Company Number: EG-SANDOZ-SDZ2024EG031272

PATIENT
  Age: 8 Year
  Sex: Female
  Weight: 25 kg

DRUGS (2)
  1. OMNITROPE [Suspect]
     Active Substance: SOMATROPIN
     Indication: Growth hormone deficiency
     Dosage: 1 MG/DAY
     Route: 058
     Dates: start: 20220426
  2. GOSERELIN [Concomitant]
     Active Substance: GOSERELIN
     Indication: Delayed puberty
     Dosage: 1 AMP/MONTH
     Route: 065
     Dates: start: 2022

REACTIONS (5)
  - Precocious puberty [Not Recovered/Not Resolved]
  - Wrong device used [Unknown]
  - Expired device used [Unknown]
  - Multiple use of single-use product [Unknown]
  - Wrong technique in product usage process [Unknown]

NARRATIVE: CASE EVENT DATE: 20220426
